FAERS Safety Report 10435905 (Version 1)
Quarter: 2014Q3

REPORT INFORMATION
  Report Type: Spontaneous
  Country: US (occurrence: US)
  Receive Date: 20140908
  Receipt Date: 20140908
  Transmission Date: 20150326
  Serious: No
  Sender: FDA-Public Use
  Company Number: US-GLAXOSMITHKLINE-A1076031A

PATIENT
  Age: 75 Year
  Sex: Female

DRUGS (2)
  1. MULTIPLE MEDICATIONS [Concomitant]
     Active Substance: UNSPECIFIED INGREDIENT
  2. BREO ELLIPTA [Suspect]
     Active Substance: FLUTICASONE FUROATE\VILANTEROL TRIFENATATE
     Indication: CHRONIC OBSTRUCTIVE PULMONARY DISEASE
     Dosage: 1PUFF PER DAY
     Route: 055
     Dates: start: 20140524

REACTIONS (3)
  - Tongue discolouration [Recovered/Resolved]
  - Adverse event [Recovered/Resolved]
  - Gingival disorder [Recovered/Resolved]

NARRATIVE: CASE EVENT DATE: 20140604
